FAERS Safety Report 9698936 (Version 2)
Quarter: 2013Q4

REPORT INFORMATION
  Report Type: Report from Study
  Country: ES (occurrence: ES)
  Receive Date: 20131120
  Receipt Date: 20131203
  Transmission Date: 20140711
  Serious: Yes (Death, Life-Threatening, Hospitalization, Disabling)
  Sender: FDA-Public Use
  Company Number: ES-CELGENEUS-144-50794-13111321

PATIENT
  Age: 84 Year
  Sex: Female
  Weight: 62.1 kg

DRUGS (4)
  1. VIDAZA [Suspect]
     Indication: MYELODYSPLASTIC SYNDROME
     Dosage: 119.26 MILLIGRAM
     Route: 058
     Dates: start: 20130829, end: 20130906
  2. NEUPOGEN [Concomitant]
     Indication: NEUTROPENIA
     Dosage: 300 MICROGRAM
     Route: 055
  3. LMWH [Concomitant]
     Indication: ANTICOAGULANT THERAPY
     Route: 041
  4. PLATELETS [Concomitant]
     Indication: THROMBOCYTOPENIA
     Route: 041

REACTIONS (6)
  - Respiratory tract infection [Recovered/Resolved with Sequelae]
  - Cardiac failure [Recovered/Resolved with Sequelae]
  - Atrial fibrillation [Recovered/Resolved with Sequelae]
  - Deep vein thrombosis [Recovered/Resolved]
  - Pneumonia [Fatal]
  - Intertrigo candida [Recovered/Resolved]
